FAERS Safety Report 21711168 (Version 1)
Quarter: 2022Q4

REPORT INFORMATION
  Report Type: Spontaneous
  Country: JP (occurrence: JP)
  Receive Date: 20221212
  Receipt Date: 20221212
  Transmission Date: 20230113
  Serious: Yes (Other)
  Sender: FDA-Public Use
  Company Number: JP-ABBVIE-4232157

PATIENT

DRUGS (1)
  1. VENCLEXTA [Suspect]
     Active Substance: VENETOCLAX
     Indication: Acute myeloid leukaemia
     Route: 048

REACTIONS (5)
  - Disseminated intravascular coagulation [Unknown]
  - Cytokine storm [Unknown]
  - Tumour lysis syndrome [Unknown]
  - Myelosuppression [Unknown]
  - Acute respiratory distress syndrome [Unknown]
